FAERS Safety Report 11157850 (Version 1)
Quarter: 2015Q2

REPORT INFORMATION
  Report Type: Spontaneous
  Country: US (occurrence: None)
  Receive Date: 20150602
  Receipt Date: 20150602
  Transmission Date: 20150821
  Serious: Yes (Other)
  Sender: FDA-Public Use
  Company Number: None

PATIENT
  Age: 75 Year
  Sex: Female
  Weight: 49.4 kg

DRUGS (1)
  1. ERTAPENEM [Suspect]
     Active Substance: ERTAPENEM
     Indication: GASTROINTESTINAL DISORDER
     Route: 042
     Dates: start: 20150522, end: 20150527

REACTIONS (2)
  - Muscular weakness [None]
  - Coordination abnormal [None]

NARRATIVE: CASE EVENT DATE: 20150527
